FAERS Safety Report 4881534-2 (Version None)
Quarter: 2006Q1

REPORT INFORMATION
  Report Type: 
  Country: None (occurrence: None)
  Receive Date: 20060116
  Receipt Date: 20060105
  Transmission Date: 20060701
  Serious: Yes (Hospitalization)
  Sender: FDA-Public Use
  Company Number: FR-GLAXOSMITHKLINE-B0405533A

PATIENT
  Age: 30 Year
  Sex: Female

DRUGS (8)
  1. COMBIVIR [Suspect]
     Indication: PROPHYLAXIS
     Dosage: 1TAB TWICE PER DAY
     Route: 048
     Dates: start: 20051130, end: 20051218
  2. TERCIAN [Suspect]
     Dosage: 10MG FOUR TIMES PER DAY
     Route: 048
     Dates: start: 20051206, end: 20051218
  3. KALETRA [Concomitant]
     Indication: PROPHYLAXIS
     Dosage: 3UNIT TWICE PER DAY
     Route: 048
     Dates: start: 20051130
  4. DEPAKENE [Concomitant]
     Route: 048
  5. URBANYL [Concomitant]
     Route: 048
  6. TEGRETOL [Concomitant]
     Route: 048
  7. SEROPRAM [Concomitant]
     Route: 048
  8. IMOVANE [Concomitant]
     Route: 048

REACTIONS (4)
  - DIARRHOEA [None]
  - HYPOKALAEMIA [None]
  - NEUTROPENIA [None]
  - PYREXIA [None]
